FAERS Safety Report 25165360 (Version 1)
Quarter: 2025Q2

REPORT INFORMATION
  Report Type: Spontaneous
  Country: US (occurrence: US)
  Receive Date: 20250407
  Receipt Date: 20250407
  Transmission Date: 20250717
  Serious: Yes (Death, Other)
  Sender: Kenvue
  Company Number: US-KENVUE-20241107860

PATIENT
  Sex: Female

DRUGS (1)
  1. TYLENOL COLD PLUS FLU PLUS COUGH NIGHT [Suspect]
     Active Substance: ACETAMINOPHEN\DEXTROMETHORPHAN HYDROBROMIDE\DOXYLAMINE SUCCINATE\PHENYLEPHRINE HYDROCHLORIDE
     Indication: Cough
     Route: 048

REACTIONS (5)
  - Cardiac arrest [Fatal]
  - Renal disorder [Fatal]
  - Liver disorder [Fatal]
  - Product use in unapproved indication [Fatal]
  - Expired product administered [Fatal]
